FAERS Safety Report 23568939 (Version 2)
Quarter: 2025Q1

REPORT INFORMATION
  Report Type: Report from Study
  Country: US (occurrence: US)
  Receive Date: 20240227
  Receipt Date: 20250130
  Transmission Date: 20250409
  Serious: No
  Sender: HRA PHARMA
  Company Number: US-ORG100014127-2023001005

PATIENT
  Age: 57 Year
  Sex: Female

DRUGS (11)
  1. METOPIRONE [Suspect]
     Active Substance: METYRAPONE
     Indication: Cushing^s syndrome
     Dosage: 3 CAPSULES EVERY NIGHT AT BEDTIME WITH MILK OR SNACK
     Route: 048
     Dates: start: 20230519, end: 20240714
  2. METOPIRONE [Suspect]
     Active Substance: METYRAPONE
     Indication: Cushing^s syndrome
     Dosage: 1 PILL DAILY FOR 1 WEEK
     Route: 048
     Dates: start: 20240728
  3. METOPIRONE [Suspect]
     Active Substance: METYRAPONE
     Indication: Cushing^s syndrome
     Dosage: 2 PILLS DAILY FOR 1 WEEK
     Route: 048
  4. METOPIRONE [Suspect]
     Active Substance: METYRAPONE
     Indication: Cushing^s syndrome
     Dosage: 3 PILLS DAILY AGAIN.
     Route: 048
  5. ATENOLOL TAB 50MG [Concomitant]
     Indication: Product used for unknown indication
  6. CELEBREX CAP 200MG [Concomitant]
     Indication: Product used for unknown indication
  7. GABAPENTIN CAP 100MG [Concomitant]
     Indication: Product used for unknown indication
  8. HYDROCHLOROT TAB 25MG [Concomitant]
     Indication: Product used for unknown indication
  9. CYMBALTA CAP 60MG [Concomitant]
     Indication: Product used for unknown indication
  10. LOSARTAN POT TAB [Concomitant]
     Indication: Product used for unknown indication
  11. MELOXICAM [Concomitant]
     Active Substance: MELOXICAM
     Indication: Product used for unknown indication

REACTIONS (1)
  - Off label use [Unknown]

NARRATIVE: CASE EVENT DATE: 20230519
